FAERS Safety Report 20142180 (Version 1)
Quarter: 2021Q4

REPORT INFORMATION
  Report Type: Report from Study
  Country: US (occurrence: US)
  Receive Date: 20211202
  Receipt Date: 20211202
  Transmission Date: 20220303
  Serious: Yes (Death, Other)
  Sender: FDA-Public Use
  Company Number: US-Taiho Oncology Inc-EU-2020-03316

PATIENT
  Age: 74 Year
  Sex: Female
  Weight: 54.480 kg

DRUGS (7)
  1. LONSURF [Suspect]
     Active Substance: TIPIRACIL HYDROCHLORIDE\TRIFLURIDINE
     Indication: Colon cancer
     Dosage: CYCLE UNKNOWN
     Route: 048
     Dates: start: 20200828
  2. AVASTIN [Suspect]
     Active Substance: BEVACIZUMAB
     Indication: Product used for unknown indication
     Route: 041
     Dates: start: 20200914
  3. DEXAMETHASONE [Concomitant]
     Active Substance: DEXAMETHASONE
  4. ESCITALOPRAM [Concomitant]
     Active Substance: ESCITALOPRAM OXALATE
  5. KEPPRA [Concomitant]
     Active Substance: LEVETIRACETAM
  6. PROTONIX [Concomitant]
     Active Substance: PANTOPRAZOLE SODIUM
  7. XARELTO [Concomitant]
     Active Substance: RIVAROXABAN

REACTIONS (3)
  - Death [Fatal]
  - Haemoglobin decreased [Recovered/Resolved]
  - Disorientation [Recovered/Resolved]

NARRATIVE: CASE EVENT DATE: 20200914
